FAERS Safety Report 25511020 (Version 1)
Quarter: 2025Q3

REPORT INFORMATION
  Report Type: Spontaneous
  Country: US (occurrence: US)
  Receive Date: 20250703
  Receipt Date: 20250703
  Transmission Date: 20251020
  Serious: No
  Sender: RADIUS PHARM
  Company Number: US-RADIUS HEALTH INC.-2024US006272

PATIENT
  Sex: Female
  Weight: 71.066 kg

DRUGS (2)
  1. TYMLOS [Suspect]
     Active Substance: ABALOPARATIDE
     Indication: Senile osteoporosis
  2. TYMLOS [Suspect]
     Active Substance: ABALOPARATIDE
     Route: 058
     Dates: start: 20240723

REACTIONS (5)
  - Injection site pain [Not Recovered/Not Resolved]
  - Dry eye [Not Recovered/Not Resolved]
  - Dizziness [Unknown]
  - Head discomfort [Unknown]
  - Drug hypersensitivity [Unknown]
